FAERS Safety Report 17374922 (Version 1)
Quarter: 2020Q1

REPORT INFORMATION
  Report Type: Spontaneous
  Country: FR (occurrence: FR)
  Receive Date: 20200206
  Receipt Date: 20200206
  Transmission Date: 20200409
  Serious: Yes (Hospitalization)
  Sender: FDA-Public Use
  Company Number: FR-TEVA-2020-FR-1181449

PATIENT
  Age: 53 Year
  Sex: Female
  Weight: 76 kg

DRUGS (8)
  1. DEROXAT [Concomitant]
     Active Substance: PAROXETINE HYDROCHLORIDE
     Route: 048
     Dates: start: 2018
  2. PROPRANOLOL [Suspect]
     Active Substance: PROPRANOLOL HYDROCHLORIDE
     Indication: PRODUCT USED FOR UNKNOWN INDICATION
     Dosage: 40 MG
     Route: 048
     Dates: start: 20191206, end: 20191212
  3. PARACETAMOL [Concomitant]
     Active Substance: ACETAMINOPHEN
     Dosage: 1 G
     Route: 048
  4. ALPRAZOLAM. [Concomitant]
     Active Substance: ALPRAZOLAM
     Dosage: 0.5 MG
     Route: 048
     Dates: start: 2019
  5. ALMOGRAN 12,5 MG, COMPRIME PELLICULE [Concomitant]
     Route: 048
     Dates: start: 2019
  6. MAGNESIUM [Concomitant]
     Active Substance: MAGNESIUM
     Route: 048
     Dates: start: 2019
  7. NOCTAMIDE 1 MG, COMPRIME SECABLE [Concomitant]
     Active Substance: LORMETAZEPAM
     Route: 048
     Dates: start: 2019
  8. ANTARENE 400 MG, COMPRIME PELLICULE [Concomitant]
     Dates: start: 20191206, end: 20191212

REACTIONS (3)
  - Bradycardia [Recovered/Resolved]
  - Hypothermia [Recovered/Resolved]
  - Hypoglycaemia [Recovered/Resolved]

NARRATIVE: CASE EVENT DATE: 20191212
